FAERS Safety Report 23627442 (Version 1)
Quarter: 2024Q1

REPORT INFORMATION
  Report Type: Spontaneous
  Country: GB (occurrence: GB)
  Receive Date: 20240313
  Receipt Date: 20240313
  Transmission Date: 20240410
  Serious: Yes (Other)
  Sender: FDA-Public Use
  Company Number: None

PATIENT
  Age: 63 Year
  Sex: Female
  Weight: 107 kg

DRUGS (5)
  1. ROSUVASTATIN [Suspect]
     Active Substance: ROSUVASTATIN
     Route: 065
     Dates: start: 20240201
  2. OMEPRAZOLE [Concomitant]
     Active Substance: OMEPRAZOLE
     Dates: start: 20240126, end: 20240223
  3. CO-DYDRAMOL [Concomitant]
     Active Substance: ACETAMINOPHEN\DIHYDROCODEINE
     Dosage: TAKE 1 OR 2
     Dates: start: 20240110, end: 20240207
  4. FENBID [Concomitant]
     Dosage: TIME INTERVAL: 0.33333333 DAYS: APPLY,
     Dates: start: 20240110, end: 20240120
  5. NAPROXEN [Concomitant]
     Active Substance: NAPROXEN
     Dates: start: 20240126, end: 20240223

REACTIONS (3)
  - Myalgia [Recovered/Resolved]
  - Dermatitis allergic [Recovering/Resolving]
  - Pruritus [Unknown]

NARRATIVE: CASE EVENT DATE: 20240202
